FAERS Safety Report 8229225-4 (Version None)
Quarter: 2012Q1

REPORT INFORMATION
  Report Type: 
  Country: None (occurrence: None)
  Receive Date: 20120322
  Receipt Date: 20120314
  Transmission Date: 20120608
  Serious: Yes (Other)
  Sender: FDA-Public Use
  Company Number: DE-TEVA-328222GER

PATIENT
  Sex: Female

DRUGS (1)
  1. COPAXONE [Suspect]
     Indication: SECONDARY PROGRESSIVE MULTIPLE SCLEROSIS
     Dosage: 20 MILLIGRAM;
     Route: 058
     Dates: start: 20100412, end: 20120306

REACTIONS (3)
  - SECONDARY PROGRESSIVE MULTIPLE SCLEROSIS [None]
  - DEMYELINATION [None]
  - CENTRAL NERVOUS SYSTEM LESION [None]
